FAERS Safety Report 10911436 (Version 1)
Quarter: 2015Q1

REPORT INFORMATION
  Report Type: Spontaneous
  Country: US (occurrence: US)
  Receive Date: 20150313
  Receipt Date: 20150313
  Transmission Date: 20150721
  Serious: Yes (Hospitalization, Other)
  Sender: FDA-Public Use
  Company Number: US-ASTRAZENECA-2015SE22514

PATIENT
  Age: 72 Year
  Sex: Female

DRUGS (1)
  1. SYMBICORT [Suspect]
     Active Substance: BUDESONIDE\FORMOTEROL FUMARATE DIHYDRATE
     Route: 055
     Dates: start: 2014

REACTIONS (7)
  - Thinking abnormal [Unknown]
  - Dizziness [Unknown]
  - Activities of daily living impaired [Unknown]
  - Dyspnoea [Unknown]
  - Fear [Unknown]
  - Intentional product misuse [Unknown]
  - Lung neoplasm malignant [Unknown]

NARRATIVE: CASE EVENT DATE: 2014
